FAERS Safety Report 6058075-2 (Version None)
Quarter: 2009Q1

REPORT INFORMATION
  Report Type: 
  Country: None (occurrence: None)
  Receive Date: 20090128
  Receipt Date: 20090114
  Transmission Date: 20090719
  Serious: Yes (Other)
  Sender: FDA-Public Use
  Company Number: CIP09000100

PATIENT
  Age: 63 Year
  Sex: Male

DRUGS (6)
  1. ACTONEL [Suspect]
     Dosage: 150 MG ONCE MONTHLY, ORAL
     Route: 048
     Dates: start: 20080101, end: 20080101
  2. CARDIOVASCULAR SYSTEM DRUGS [Concomitant]
  3. EFFEXOR /01233801/ (VENLAFAXINE) [Concomitant]
  4. FLOMAX /00889901/ (MORNIFLUMATE) [Concomitant]
  5. FENTANYL-100 [Concomitant]
  6. LORTAB [Concomitant]

REACTIONS (4)
  - DEVICE INTOLERANCE [None]
  - LOOSE TOOTH [None]
  - TOOTH FRACTURE [None]
  - TOOTH LOSS [None]
